FAERS Safety Report 7033297-2 (Version None)
Quarter: 2010Q4

REPORT INFORMATION
  Report Type: 
  Country: None (occurrence: None)
  Receive Date: 20101007
  Receipt Date: 20100926
  Transmission Date: 20110411
  Serious: Yes (Hospitalization)
  Sender: FDA-Public Use
  Company Number: B0672636A

PATIENT
  Sex: Female
  Weight: 16.5 kg

DRUGS (3)
  1. LAMICTAL [Suspect]
     Indication: EPILEPSY
     Dosage: 50MG PER DAY
     Route: 048
     Dates: start: 20081027, end: 20081203
  2. TEGRETOL [Concomitant]
     Route: 065
  3. AMOXICILLIN AND CLAVULANATE POTASSIUM [Concomitant]
     Indication: PHARYNGITIS
     Route: 065
     Dates: start: 20081203, end: 20081203

REACTIONS (5)
  - COUGH [None]
  - DECREASED APPETITE [None]
  - ERYTHEMA [None]
  - RHINORRHOEA [None]
  - SKIN LESION [None]
